FAERS Safety Report 4621581-9 (Version None)
Quarter: 2005Q1

REPORT INFORMATION
  Report Type: 
  Country: None (occurrence: None)
  Receive Date: 20050328
  Receipt Date: 20020124
  Transmission Date: 20050727
  Serious: Yes (Hospitalization)
  Sender: FDA-Public Use
  Company Number: 3301

PATIENT
  Age: 21 Year
  Sex: Female

DRUGS (8)
  1. AMIKACIN [Suspect]
     Indication: PYODERMA GANGRENOSUM
     Dosage: 750 MG; IV
     Route: 042
     Dates: start: 20011012, end: 20011015
  2. RANITIDINE HYDROCHLORIDE [Concomitant]
  3. METHYLPREDNISOLONE [Concomitant]
  4. AMOXICILLIN [Concomitant]
  5. AMOXICILLINE + CLAVUNALIC ACID [Concomitant]
  6. ........... [Concomitant]
  7. CILASTATIN [Concomitant]
  8. IMIPENEM [Concomitant]

REACTIONS (3)
  - ABORTION SPONTANEOUS [None]
  - CELLULITIS GANGRENOUS [None]
  - DRUG EXPOSURE DURING PREGNANCY [None]
